FAERS Safety Report 9896357 (Version 2)
Quarter: 2014Q1

REPORT INFORMATION
  Report Type: Spontaneous
  Country: US (occurrence: US)
  Receive Date: 20140213
  Receipt Date: 20140213
  Transmission Date: 20141002
  Serious: No
  Sender: FDA-Public Use
  Company Number: US-BRISTOL-MYERS SQUIBB COMPANY-19088269

PATIENT
  Age: 56 Year
  Sex: Female
  Weight: 86.17 kg

DRUGS (2)
  1. ABATACEPT SUBQ INJECTION 125MG/ML [Suspect]
     Indication: RHEUMATOID ARTHRITIS
     Dosage: LAST DOSE: 12SEP13
     Route: 058
  2. TETANUS [Concomitant]
     Dosage: TETANUS SHOT

REACTIONS (2)
  - Device issue [Unknown]
  - Drug dose omission [Unknown]
